FAERS Safety Report 11846289 (Version 2)
Quarter: 2015Q4

REPORT INFORMATION
  Report Type: Report from Study
  Country: GR (occurrence: GR)
  Receive Date: 20151217
  Receipt Date: 20151223
  Transmission Date: 20160305
  Serious: Yes (Death, Hospitalization, Other)
  Sender: FDA-Public Use
  Company Number: GR-ABBVIE-15P-066-1517861-00

PATIENT
  Age: 67 Year
  Sex: Male

DRUGS (2)
  1. DUODOPA [Suspect]
     Active Substance: CARBIDOPA\LEVODOPA
     Dosage: MORNING DOSE: 16 ML,CONTINUOUS RATE: 3,8 ML/H,EXTRA DOSE: 2 ML
     Route: 050
     Dates: start: 20151211
  2. DUODOPA [Suspect]
     Active Substance: CARBIDOPA\LEVODOPA
     Indication: PARKINSON^S DISEASE
     Dosage: MORNING DOSE: 16 ML,CONTINUOUS RATE: 3,6 ML/H,EXTRA DOSE: 1,8 ML
     Route: 050
     Dates: start: 20151001, end: 20151211

REACTIONS (6)
  - Thrombosis [Recovering/Resolving]
  - Respiratory tract infection [Not Recovered/Not Resolved]
  - Myocardial ischaemia [Unknown]
  - Oxygen saturation decreased [Recovering/Resolving]
  - Troponin increased [Recovered/Resolved]
  - Death [Fatal]

NARRATIVE: CASE EVENT DATE: 201512
